FAERS Safety Report 4511620-8 (Version None)
Quarter: 2004Q4

REPORT INFORMATION
  Report Type: 
  Country: None (occurrence: None)
  Receive Date: 20041129
  Receipt Date: 20041018
  Transmission Date: 20050328
  Serious: No
  Sender: FDA-Public Use
  Company Number: US-BRISTOL-MYERS SQUIBB COMPANY-12735197

PATIENT

DRUGS (6)
  1. ABILIFY [Suspect]
     Indication: BIPOLAR DISORDER
  2. LITHIUM [Concomitant]
  3. LAMICTAL [Concomitant]
  4. NEURONTIN [Concomitant]
  5. WELLBUTRIN [Concomitant]
  6. PROZAC [Concomitant]

REACTIONS (1)
  - NAUSEA [None]
